FAERS Safety Report 21001887 (Version 1)
Quarter: 2022Q2

REPORT INFORMATION
  Report Type: Report from Study
  Country: US (occurrence: US)
  Receive Date: 20220624
  Receipt Date: 20220624
  Transmission Date: 20220721
  Serious: No
  Sender: FDA-Public Use
  Company Number: US-JNJFOC-20220641527

PATIENT
  Age: 45 Year
  Sex: Female
  Weight: 72.640 kg

DRUGS (9)
  1. STELARA [Suspect]
     Active Substance: USTEKINUMAB
     Indication: Crohn^s disease
     Dosage: STRENGTH: 90.00 MG/ML
     Route: 058
  2. STELARA [Suspect]
     Active Substance: USTEKINUMAB
  3. STELARA [Suspect]
     Active Substance: USTEKINUMAB
  4. STELARA [Suspect]
     Active Substance: USTEKINUMAB
  5. STELARA [Suspect]
     Active Substance: USTEKINUMAB
     Indication: Crohn^s disease
     Dosage: UNKNOWN
     Route: 058
  6. STELARA [Suspect]
     Active Substance: USTEKINUMAB
  7. STELARA [Suspect]
     Active Substance: USTEKINUMAB
  8. STELARA [Suspect]
     Active Substance: USTEKINUMAB
  9. NUCALA [Concomitant]
     Active Substance: MEPOLIZUMAB
     Indication: Asthma

REACTIONS (8)
  - Device deployment issue [Unknown]
  - Syringe issue [Unknown]
  - Product dose omission issue [Unknown]
  - Illness [Unknown]
  - Fistula repair [Unknown]
  - Abdominal pain upper [Unknown]
  - Psoriasis [Unknown]
  - Needle issue [Unknown]

NARRATIVE: CASE EVENT DATE: 20220501
